FAERS Safety Report 16458739 (Version 1)
Quarter: 2019Q2

REPORT INFORMATION
  Report Type: Spontaneous
  Country: US (occurrence: US)
  Receive Date: 20190620
  Receipt Date: 20190620
  Transmission Date: 20190711
  Serious: No
  Sender: FDA-Public Use
  Company Number: US-THERAPEUTICSMD-2019TMD00734

PATIENT
  Age: 32 Year
  Sex: Female
  Weight: 65.31 kg

DRUGS (6)
  1. IMVEXXY [Suspect]
     Active Substance: ESTRADIOL
     Indication: MENOPAUSE
     Dosage: 4 ?G, 2X/WEEK
     Route: 067
     Dates: start: 201904
  2. IMVEXXY [Suspect]
     Active Substance: ESTRADIOL
     Indication: PREMATURE MENOPAUSE
  3. PROGESTERONE. [Concomitant]
     Active Substance: PROGESTERONE
     Dosage: UNK
  4. IMVEXXY [Suspect]
     Active Substance: ESTRADIOL
     Indication: MENOPAUSE
     Dosage: 10 ?G, 2X/WEEK BEFORE BED
     Route: 067
     Dates: start: 20190317, end: 201904
  5. IMVEXXY [Suspect]
     Active Substance: ESTRADIOL
     Indication: PREMATURE MENOPAUSE
  6. TESTOSTERONE. [Concomitant]
     Active Substance: TESTOSTERONE
     Dosage: LOW DOSAGE

REACTIONS (2)
  - Off label use [Not Recovered/Not Resolved]
  - Vaginal haemorrhage [Recovered/Resolved]

NARRATIVE: CASE EVENT DATE: 20190317
